FAERS Safety Report 7969037-X (Version None)
Quarter: 2011Q4

REPORT INFORMATION
  Report Type: 
  Country: None (occurrence: None)
  Receive Date: 20111208
  Receipt Date: 20111129
  Transmission Date: 20120403
  Serious: Yes (Other)
  Sender: FDA-Public Use
  Company Number: LEO-2011-01015

PATIENT
  Age: 57 Year
  Sex: Male

DRUGS (1)
  1. INNOHEP [Suspect]
     Indication: DEEP VEIN THROMBOSIS
     Dosage: 9000 IU (4500 IU, 2 IN 1 D), SUBCUTANEOUS
     Route: 058

REACTIONS (4)
  - THROMBOSIS [None]
  - DISEASE RECURRENCE [None]
  - INCORRECT DOSE ADMINISTERED [None]
  - DRUG DISPENSING ERROR [None]
